FAERS Safety Report 23034743 (Version 1)
Quarter: 2023Q4

REPORT INFORMATION
  Report Type: Spontaneous
  Country: JP (occurrence: JP)
  Receive Date: 20231005
  Receipt Date: 20231005
  Transmission Date: 20240109
  Serious: Yes (Hospitalization, Other)
  Sender: FDA-Public Use
  Company Number: JP-ANIPHARMA-2023-JP-000374

PATIENT
  Age: 81 Year
  Sex: Male

DRUGS (1)
  1. CLOPIDOGREL BISULFATE [Suspect]
     Active Substance: CLOPIDOGREL BISULFATE
     Indication: Cerebral infarction
     Dosage: 75 MG DAILY

REACTIONS (3)
  - Gastroenteritis eosinophilic [Recovered/Resolved]
  - Eosinophilic pneumonia [Recovered/Resolved]
  - Hypereosinophilic syndrome [Recovered/Resolved]
